FAERS Safety Report 7722023-7 (Version None)
Quarter: 2011Q3

REPORT INFORMATION
  Report Type: 
  Country: None (occurrence: None)
  Receive Date: 20110831
  Receipt Date: 20110824
  Transmission Date: 20111222
  Serious: Yes (Death)
  Sender: FDA-Public Use
  Company Number: US-PFIZER INC-2011159728

PATIENT
  Sex: Male

DRUGS (2)
  1. VFEND [Suspect]
     Indication: FUNGAL INFECTION
     Dosage: 200 MG, EVERY 12 HOURS
     Route: 048
     Dates: start: 20110501, end: 20110701
  2. VFEND [Suspect]
     Indication: ASPERGILLOSIS

REACTIONS (1)
  - ACUTE MYELOID LEUKAEMIA [None]
